FAERS Safety Report 8400159 (Version 4)
Quarter: 2013Q1

REPORT INFORMATION
  Report Type: Report from Study
  Country: US (occurrence: US)
  Receive Date: 20120210
  Receipt Date: 20130318
  Transmission Date: 20140127
  Serious: Yes (Hospitalization)
  Sender: FDA-Public Use
  Company Number: US-ROCHE-1038009

PATIENT
  Age: 60 Year
  Sex: Male
  Weight: 78 kg

DRUGS (3)
  1. PEG-INTERFERON ALFA 2A [Suspect]
     Indication: CHRONIC HEPATITIS C
     Route: 058
     Dates: start: 20111026
  2. RIBAVIRIN [Suspect]
     Indication: CHRONIC HEPATITIS C
     Route: 048
     Dates: start: 20111026
  3. BLINDED BI 201335 [Suspect]
     Indication: CHRONIC HEPATITIS C
     Route: 048
     Dates: start: 20111026

REACTIONS (5)
  - Muscle spasms [Recovered/Resolved]
  - Anaemia [Recovered/Resolved]
  - Muscle spasms [Recovered/Resolved]
  - Muscle spasms [Recovered/Resolved]
  - Mouth ulceration [Recovered/Resolved]
